FAERS Safety Report 8414311-6 (Version None)
Quarter: 2012Q2

REPORT INFORMATION
  Report Type: 
  Country: None (occurrence: None)
  Receive Date: 20120605
  Receipt Date: 20120523
  Transmission Date: 20120825
  Serious: Yes (Other)
  Sender: FDA-Public Use
  Company Number: LB-MYLANLABS-2012S1010696

PATIENT
  Age: 3 Decade
  Sex: Female

DRUGS (7)
  1. IRINOTECAN HCL [Concomitant]
     Indication: RHABDOMYOSARCOMA RECURRENT
     Route: 065
  2. ETOPOSIDE [Suspect]
     Indication: RHABDOMYOSARCOMA RECURRENT
     Route: 065
  3. DOXORUBICIN HCL [Suspect]
     Indication: RHABDOMYOSARCOMA RECURRENT
     Route: 065
  4. IFOSFAMIDE [Suspect]
     Indication: RHABDOMYOSARCOMA RECURRENT
     Route: 065
  5. CYCLOPHOSPHAMIDE [Suspect]
     Indication: RHABDOMYOSARCOMA RECURRENT
     Route: 065
  6. DACTINOMYCIN [Suspect]
     Indication: RHABDOMYOSARCOMA RECURRENT
     Route: 065
  7. VINCRISTINE [Suspect]
     Indication: RHABDOMYOSARCOMA RECURRENT
     Route: 065

REACTIONS (1)
  - OVARIAN FAILURE [None]
